FAERS Safety Report 17734758 (Version 3)
Quarter: 2021Q4

REPORT INFORMATION
  Report Type: Spontaneous
  Country: US (occurrence: None)
  Receive Date: 20200501
  Receipt Date: 20211126
  Transmission Date: 20220304
  Serious: Yes (Other)
  Sender: FDA-Public Use
  Company Number: 2020SE55377

PATIENT
  Age: 53 Year
  Sex: Female
  Weight: 163.3 kg

DRUGS (29)
  1. NEXIUM [Suspect]
     Active Substance: ESOMEPRAZOLE MAGNESIUM
     Indication: Gastrooesophageal reflux disease
     Route: 048
     Dates: start: 200102, end: 201701
  2. NEXIUM [Suspect]
     Active Substance: ESOMEPRAZOLE MAGNESIUM
     Indication: Gastrooesophageal reflux disease
     Dosage: 20-40 MG DAILY
     Route: 048
     Dates: start: 2001, end: 2017
  3. PRILOSEC [Suspect]
     Active Substance: OMEPRAZOLE MAGNESIUM
     Indication: Gastrooesophageal reflux disease
     Route: 048
     Dates: start: 200102, end: 201701
  4. PRILOSEC [Suspect]
     Active Substance: OMEPRAZOLE MAGNESIUM
     Indication: Gastrooesophageal reflux disease
     Dosage: 20-40 MG DAILY
     Route: 048
     Dates: start: 2001, end: 2017
  5. PREVACID [Suspect]
     Active Substance: LANSOPRAZOLE
     Indication: Gastrooesophageal reflux disease
     Route: 065
     Dates: start: 200102, end: 201701
  6. PREVACID [Suspect]
     Active Substance: LANSOPRAZOLE
     Indication: Gastrooesophageal reflux disease
     Dosage: 20-40 MG ONCE DAILY
     Route: 065
     Dates: start: 2001, end: 2017
  7. VITAMIN D [Concomitant]
     Active Substance: VITAMIN D NOS
     Indication: Vitamin D deficiency
  8. TUMS [Concomitant]
     Active Substance: CALCIUM CARBONATE
  9. PEPTO-BISMOL [Concomitant]
     Active Substance: BISMUTH SUBSALICYLATE
  10. IPRATROPIUM [Concomitant]
     Active Substance: IPRATROPIUM
  11. PREDNISONE [Concomitant]
     Active Substance: PREDNISONE
  12. ALBUTEROL SULFATE [Concomitant]
     Active Substance: ALBUTEROL SULFATE
  13. AZITHROMYCIN [Concomitant]
     Active Substance: AZITHROMYCIN
  14. LIBRAX [Concomitant]
     Active Substance: CHLORDIAZEPOXIDE HYDROCHLORIDE\CLIDINIUM BROMIDE
  15. PERCOCET [Concomitant]
     Active Substance: ACETAMINOPHEN\OXYCODONE HYDROCHLORIDE
  16. VITAMIN D2 [Concomitant]
     Active Substance: ERGOCALCIFEROL
  17. XANAX [Concomitant]
     Active Substance: ALPRAZOLAM
  18. FLUCONAZOLE [Concomitant]
     Active Substance: FLUCONAZOLE
  19. ALPRAZOLAM [Concomitant]
     Active Substance: ALPRAZOLAM
  20. VIBERZI [Concomitant]
     Active Substance: ELUXADOLINE
  21. RABEPRAZOLE [Concomitant]
     Active Substance: RABEPRAZOLE
  22. STIOLTO RESPIMAT [Concomitant]
     Active Substance: OLODATEROL HYDROCHLORIDE\TIOTROPIUM BROMIDE MONOHYDRATE
  23. METFORMIN [Concomitant]
     Active Substance: METFORMIN HYDROCHLORIDE
  24. VALACYCLOVIR [Concomitant]
     Active Substance: VALACYCLOVIR HYDROCHLORIDE
  25. LIDOCAINE [Concomitant]
     Active Substance: LIDOCAINE
  26. GENTAMICIN [Concomitant]
     Active Substance: GENTAMICIN
  27. VIBERZI [Concomitant]
     Active Substance: ELUXADOLINE
  28. CIMETIDINE [Concomitant]
     Active Substance: CIMETIDINE
  29. KETOCONAZOLE [Concomitant]
     Active Substance: KETOCONAZOLE

REACTIONS (2)
  - Chronic kidney disease [Not Recovered/Not Resolved]
  - Renal failure [Unknown]

NARRATIVE: CASE EVENT DATE: 20170101
